FAERS Safety Report 24179236 (Version 1)
Quarter: 2024Q3

REPORT INFORMATION
  Report Type: Spontaneous
  Country: CN (occurrence: CN)
  Receive Date: 20240806
  Receipt Date: 20240806
  Transmission Date: 20241017
  Serious: Yes (Hospitalization, Other)
  Sender: BAXTER
  Company Number: None

PATIENT
  Age: 48 Year
  Sex: Female
  Weight: 69 kg

DRUGS (6)
  1. CYCLOPHOSPHAMIDE [Suspect]
     Active Substance: CYCLOPHOSPHAMIDE
     Indication: Breast cancer female
     Dosage: 800 MG, ONE TIME IN ONE DAY, DILUTED WITH 0.9% SODIUM CHLORIDE INJECTION 100ML, ONE CYCLE OF CHEMOTH
     Route: 041
     Dates: start: 20240717, end: 20240717
  2. CYCLOPHOSPHAMIDE [Suspect]
     Active Substance: CYCLOPHOSPHAMIDE
     Indication: Chemotherapy
  3. DEXTROSE [Suspect]
     Active Substance: DEXTROSE\DEXTROSE MONOHYDRATE
     Indication: Medication dilution
     Dosage: (5%) 100 ML, ONE TIME IN ONE DAY, USED TO DILUTE PIRARUBICIN HYDROCHLORIDE FOR INJECTION 80MG
     Route: 041
     Dates: start: 20240717, end: 20240717
  4. SODIUM CHLORIDE [Suspect]
     Active Substance: SODIUM CHLORIDE
     Indication: Medication dilution
     Dosage: (0.9%)100 ML, ONE TIME IN ONE DAY, USED TO DILUTE CYCLOPHOSPHAMIDE FOR INJECTION 800MG
     Route: 041
     Dates: start: 20240717, end: 20240717
  5. PIRARUBICIN HYDROCHLORIDE [Suspect]
     Active Substance: PIRARUBICIN HYDROCHLORIDE
     Indication: Breast cancer female
     Dosage: 80 MG, ONE TIME IN ONE DAY, DILUTED WITH 5% GLUCOSE INJECTION 100ML, ONE CYCLE OF CHEMOTHERAPY
     Route: 041
     Dates: start: 20240717, end: 20240717
  6. PIRARUBICIN HYDROCHLORIDE [Suspect]
     Active Substance: PIRARUBICIN HYDROCHLORIDE
     Indication: Chemotherapy

REACTIONS (1)
  - Myelosuppression [Recovered/Resolved]

NARRATIVE: CASE EVENT DATE: 20240723
